FAERS Safety Report 5733523-3 (Version None)
Quarter: 2008Q2

REPORT INFORMATION
  Report Type: 
  Country: None (occurrence: None)
  Receive Date: 20080509
  Receipt Date: 20080429
  Transmission Date: 20081010
  Serious: Yes (Hospitalization)
  Sender: FDA-Public Use
  Company Number: DE-PFIZER INC-2008031999

PATIENT
  Sex: Female

DRUGS (3)
  1. SUTENT [Suspect]
     Indication: BREAST CANCER
     Route: 048
     Dates: start: 20080327, end: 20080403
  2. XELODA [Suspect]
     Indication: BREAST CANCER
     Dosage: DAILY DOSE:3600MG-FREQ:BID
     Route: 048
     Dates: start: 20080327, end: 20080403
  3. IVABRADINE [Concomitant]
     Route: 048

REACTIONS (3)
  - GASTRITIS [None]
  - PERITONITIS [None]
  - SUBILEUS [None]
